FAERS Safety Report 4823779-3 (Version None)
Quarter: 2005Q4

REPORT INFORMATION
  Report Type: 
  Country: None (occurrence: None)
  Receive Date: 20051109
  Receipt Date: 20050609
  Transmission Date: 20060501
  Serious: Yes (Hospitalization)
  Sender: FDA-Public Use
  Company Number: US-MERCK-0506USA01852

PATIENT
  Age: 60 Year
  Sex: Female
  Weight: 77 kg

DRUGS (15)
  1. VIOXX [Suspect]
     Indication: ARTHRALGIA
     Route: 048
     Dates: start: 20010101, end: 20040901
  2. VIOXX [Suspect]
     Route: 048
     Dates: start: 20010101, end: 20040901
  3. VIOXX [Suspect]
     Route: 048
     Dates: start: 20000101
  4. VIOXX [Suspect]
     Indication: RHEUMATOID ARTHRITIS
     Route: 048
     Dates: start: 20010101, end: 20040901
  5. VIOXX [Suspect]
     Route: 048
     Dates: start: 20010101, end: 20040901
  6. VIOXX [Suspect]
     Route: 048
     Dates: start: 20000101
  7. TYLENOL W/ CODEINE NO. 3 [Concomitant]
     Route: 065
  8. ALTACE [Concomitant]
     Indication: CARDIAC DISORDER
     Route: 065
     Dates: start: 20030101
  9. LIPITOR [Concomitant]
     Indication: BLOOD CHOLESTEROL INCREASED
     Route: 065
     Dates: start: 19960101
  10. ASPIRIN [Concomitant]
     Route: 065
     Dates: start: 19960101
  11. ZOLOFT [Concomitant]
     Indication: DEPRESSION
     Route: 065
     Dates: start: 20030101
  12. TOPROL-XL [Concomitant]
     Indication: HYPERTENSION
     Route: 065
     Dates: start: 19960101
  13. CALCIUM (UNSPECIFIED) [Concomitant]
     Route: 065
  14. PLAVIX [Concomitant]
     Route: 065
     Dates: start: 20030101, end: 20040101
  15. TRICOR [Concomitant]
     Indication: BLOOD CHOLESTEROL INCREASED
     Route: 065

REACTIONS (11)
  - ANGINA UNSTABLE [None]
  - ARTHROPATHY [None]
  - BRADYCARDIA [None]
  - CARDIAC DISORDER [None]
  - EPISTAXIS [None]
  - MYOCARDIAL INFARCTION [None]
  - OSTEOPOROSIS [None]
  - SCIATICA [None]
  - SYNOVIAL CYST [None]
  - URINARY TRACT INFECTION [None]
  - VASCULAR GRAFT COMPLICATION [None]
